FAERS Safety Report 10257695 (Version 1)
Quarter: 2014Q2

REPORT INFORMATION
  Report Type: Other
  Country: GB (occurrence: GB)
  Receive Date: 20140625
  Receipt Date: 20140625
  Transmission Date: 20141212
  Serious: Yes (Disabling, Other)
  Sender: FDA-Public Use
  Company Number: GB-PERRIGO-14GB006091

PATIENT
  Age: 69 Year
  Sex: Female
  Weight: 84.3 kg

DRUGS (3)
  1. NAPROXEN 250MG 16028/0144 [Suspect]
     Indication: PAIN
     Dosage: 500 MG, UNK
     Route: 048
     Dates: start: 20140528, end: 20140528
  2. CO-AMOXICLAV                       /00756801/ [Concomitant]
     Indication: PRODUCT USED FOR UNKNOWN INDICATION
     Route: 065
  3. PREGABALIN [Concomitant]
     Indication: PRODUCT USED FOR UNKNOWN INDICATION
     Route: 065

REACTIONS (3)
  - Swelling face [Recovering/Resolving]
  - Peripheral swelling [Recovering/Resolving]
  - Muscular weakness [Recovering/Resolving]
